FAERS Safety Report 9861384 (Version 2)
Quarter: 2014Q1

REPORT INFORMATION
  Report Type: Report from Study
  Country: GB (occurrence: GB)
  Receive Date: 20140203
  Receipt Date: 20140203
  Transmission Date: 20141002
  Serious: Yes (Death)
  Sender: FDA-Public Use
  Company Number: GB-ROCHE-1342122

PATIENT
  Sex: Male
  Weight: 93 kg

DRUGS (3)
  1. RITUXIMAB [Suspect]
     Indication: RHEUMATOID ARTHRITIS
     Route: 065
     Dates: start: 20091020
  2. LEFLUNOMIDE [Concomitant]
  3. SULPHASALAZINE [Concomitant]

REACTIONS (1)
  - Lower respiratory tract infection [Fatal]
